FAERS Safety Report 12605619 (Version 1)
Quarter: 2016Q3

REPORT INFORMATION
  Report Type: Spontaneous
  Country: US (occurrence: US)
  Receive Date: 20160729
  Receipt Date: 20160729
  Transmission Date: 20161109
  Serious: Yes (Hospitalization)
  Sender: FDA-Public Use
  Company Number: US-ROCHE-1802375

PATIENT
  Age: 51 Year
  Sex: Female

DRUGS (1)
  1. XOLAIR [Suspect]
     Active Substance: OMALIZUMAB
     Indication: ASTHMA
     Dosage: ON 30/JUN/2016, SHE RECEIVED HER LAST SHOT OF OMALIZUMAB.
     Route: 058
     Dates: start: 20160420

REACTIONS (2)
  - Pseudomonas test positive [Unknown]
  - Hyper IgE syndrome [Unknown]
